FAERS Safety Report 22700275 (Version 4)
Quarter: 2023Q4

REPORT INFORMATION
  Report Type: Spontaneous
  Country: GR (occurrence: GR)
  Receive Date: 20230713
  Receipt Date: 20231017
  Transmission Date: 20240110
  Serious: Yes (Death)
  Sender: FDA-Public Use
  Company Number: GR-MYLANLABS-2023M1073320

PATIENT
  Age: 82 Year
  Sex: Male

DRUGS (2)
  1. ALPRAZOLAM [Suspect]
     Active Substance: ALPRAZOLAM
     Indication: Psychotic symptom
     Dosage: 0.5 MG
     Route: 065
     Dates: start: 2022
  2. LORAZEPAM [Suspect]
     Active Substance: LORAZEPAM
     Indication: Psychotic symptom
     Dosage: 2.5 MG
     Route: 065
     Dates: start: 2022

REACTIONS (1)
  - Completed suicide [Fatal]
